FAERS Safety Report 7782216-X (Version None)
Quarter: 2011Q3

REPORT INFORMATION
  Report Type: 
  Country: None (occurrence: None)
  Receive Date: 20110927
  Receipt Date: 20110920
  Transmission Date: 20111222
  Serious: Yes (Other)
  Sender: FDA-Public Use
  Company Number: HU-PFIZER INC-2011224372

PATIENT
  Age: 48 Year
  Sex: Female
  Weight: 95 kg

DRUGS (8)
  1. HUMULIN R [Concomitant]
     Dosage: UNK
     Dates: start: 20020101
  2. CALCIUM DOBESILATE [Concomitant]
     Dosage: UNK
     Dates: start: 20030101
  3. CARVEDILOL [Concomitant]
     Dosage: UNK
     Dates: start: 20050101
  4. LYRICA [Suspect]
     Dosage: 150 MG, 2X/DAY
     Dates: start: 20110528, end: 20110628
  5. RAMIPRIL [Concomitant]
     Dosage: UNK
     Dates: start: 20090101
  6. INDAPAMIDE [Concomitant]
     Dosage: UNK
     Dates: start: 20070101
  7. THIOGAMMA [Concomitant]
     Dosage: UNK
     Dates: start: 20110101
  8. CARDURA [Concomitant]
     Dosage: UNK
     Dates: start: 20050101

REACTIONS (2)
  - RENAL DISORDER [None]
  - CONDITION AGGRAVATED [None]
